FAERS Safety Report 6792899-9 (Version None)
Quarter: 2010Q2

REPORT INFORMATION
  Report Type: 
  Country: None (occurrence: None)
  Receive Date: 20100624
  Receipt Date: 20081110
  Transmission Date: 20101027
  Serious: No
  Sender: FDA-Public Use
  Company Number: US-PFIZER INC-2008091190

PATIENT
  Sex: Female
  Weight: 86.4 kg

DRUGS (2)
  1. GEODON [Suspect]
     Indication: BIPOLAR DISORDER
     Route: 048
     Dates: start: 20060101
  2. ZOLOFT [Concomitant]
     Dates: start: 20060101

REACTIONS (2)
  - ALOPECIA [None]
  - TRICHORRHEXIS [None]
